FAERS Safety Report 20057061 (Version 2)
Quarter: 2021Q4

REPORT INFORMATION
  Report Type: Report from Study
  Country: CA (occurrence: CA)
  Receive Date: 20211111
  Receipt Date: 20211220
  Transmission Date: 20220304
  Serious: Yes (Other)
  Sender: FDA-Public Use
  Company Number: CA-JNJFOC-20211120160

PATIENT
  Age: 31 Year
  Sex: Male
  Weight: 80.4 kg

DRUGS (3)
  1. REMICADE [Suspect]
     Active Substance: INFLIXIMAB
     Indication: Crohn^s disease
     Route: 042
     Dates: start: 20100423
  2. REMICADE [Suspect]
     Active Substance: INFLIXIMAB
     Dosage: FREQUENCY CHANGED AND DOSE REDUCED
     Route: 042
     Dates: start: 20151210
  3. METHOTREXATE [Concomitant]
     Active Substance: METHOTREXATE
     Indication: Product used for unknown indication
     Route: 048

REACTIONS (6)
  - Haematochezia [Not Recovered/Not Resolved]
  - Weight decreased [Not Recovered/Not Resolved]
  - Eating disorder [Unknown]
  - Abdominal pain [Not Recovered/Not Resolved]
  - Diarrhoea [Not Recovered/Not Resolved]
  - Streptococcal infection [Recovered/Resolved]

NARRATIVE: CASE EVENT DATE: 20211001
